FAERS Safety Report 20912947 (Version 1)
Quarter: 2022Q2

REPORT INFORMATION
  Report Type: Spontaneous
  Country: US (occurrence: US)
  Receive Date: 20220603
  Receipt Date: 20220603
  Transmission Date: 20220721
  Serious: No
  Sender: FDA-Public Use
  Company Number: US-BAUSCH-BL-2022-012989

PATIENT
  Sex: Male

DRUGS (1)
  1. PYRIDOSTIGMINE BROMIDE [Suspect]
     Active Substance: PYRIDOSTIGMINE BROMIDE
     Indication: Product used for unknown indication
     Route: 065

REACTIONS (4)
  - Arthralgia [Unknown]
  - Neuralgia [Unknown]
  - Blood uric acid increased [Unknown]
  - Calcium deficiency [Unknown]
